FAERS Safety Report 24686992 (Version 1)
Quarter: 2024Q4

REPORT INFORMATION
  Report Type: Spontaneous
  Country: US (occurrence: None)
  Receive Date: 20241130
  Receipt Date: 20241130
  Transmission Date: 20250115
  Serious: No
  Sender: Public
  Company Number: None

PATIENT
  Age: 73 Year
  Sex: Male
  Weight: 99 kg

DRUGS (6)
  1. LAGEVRIO [Suspect]
     Active Substance: MOLNUPIRAVIR
     Indication: COVID-19
     Dosage: 4 TABLETS EVERY 12 HOURS ORAL?
     Route: 048
     Dates: start: 20241121, end: 20241125
  2. ELIQUIS [Concomitant]
     Active Substance: APIXABAN
  3. FLECAINIDE [Concomitant]
     Active Substance: FLECAINIDE
  4. METOPROLOL [Concomitant]
     Active Substance: METOPROLOL
  5. PRAVASTATIN [Concomitant]
     Active Substance: PRAVASTATIN
  6. One-a-Day Multiple vitamins (senior) [Concomitant]

REACTIONS (3)
  - Rash [None]
  - Rash [None]
  - Rash [None]

NARRATIVE: CASE EVENT DATE: 20241129
